FAERS Safety Report 9848195 (Version 1)
Quarter: 2014Q1

REPORT INFORMATION
  Report Type: Spontaneous
  Country: US (occurrence: US)
  Receive Date: 20140128
  Receipt Date: 20140128
  Transmission Date: 20141002
  Serious: No
  Sender: FDA-Public Use
  Company Number: US-PFIZER INC-2014023094

PATIENT
  Age: 68 Year
  Sex: Female
  Weight: 68.03 kg

DRUGS (2)
  1. ATORVASTATIN CALCIUM [Suspect]
     Indication: BLOOD CHOLESTEROL INCREASED
     Dosage: 10 MG, DAILY
     Route: 048
  2. ATORVASTATIN CALCIUM [Suspect]
     Dosage: 20 MG, DAILY
     Route: 048

REACTIONS (2)
  - Blood pressure increased [Unknown]
  - Palpitations [Unknown]
